FAERS Safety Report 15593527 (Version 2)
Quarter: 2018Q4

REPORT INFORMATION
  Report Type: Report from Study
  Country: None (occurrence: NL)
  Receive Date: 20181106
  Receipt Date: 20181211
  Transmission Date: 20190205
  Serious: Yes (Other)
  Sender: FDA-Public Use
  Company Number: NL-ABBVIE-18S-114-2540015-00

PATIENT
  Age: 1 Year
  Sex: Male
  Weight: 9.94 kg

DRUGS (6)
  1. SYNAGIS [Suspect]
     Active Substance: PALIVIZUMAB
     Indication: HEART DISEASE CONGENITAL
     Route: 050
     Dates: start: 20181002, end: 20181002
  2. SYNAGIS [Suspect]
     Active Substance: PALIVIZUMAB
     Route: 050
     Dates: start: 20180227, end: 20180424
  3. SYNAGIS [Suspect]
     Active Substance: PALIVIZUMAB
     Route: 050
  4. FERROUS FUMERATE [Concomitant]
     Active Substance: FERROUS FUMARATE
     Indication: PRODUCT USED FOR UNKNOWN INDICATION
  5. SYNAGIS [Suspect]
     Active Substance: PALIVIZUMAB
     Route: 050
     Dates: start: 20181128, end: 20181128
  6. SYNAGIS [Suspect]
     Active Substance: PALIVIZUMAB
     Route: 050
     Dates: start: 20181030, end: 20181030

REACTIONS (2)
  - Catheterisation cardiac [Recovered/Resolved]
  - Crying [Recovered/Resolved]

NARRATIVE: CASE EVENT DATE: 2018
